FAERS Safety Report 6287406-3 (Version None)
Quarter: 2009Q3

REPORT INFORMATION
  Report Type: 
  Country: None (occurrence: None)
  Receive Date: 20090727
  Receipt Date: 20090715
  Transmission Date: 20100115
  Serious: Yes (Other)
  Sender: FDA-Public Use
  Company Number: 2007-03025

PATIENT
  Age: 71 Year
  Sex: Female
  Weight: 55 kg

DRUGS (9)
  1. VELCADE [Suspect]
     Indication: MULTIPLE MYELOMA
     Dosage: 2 MG, INTRAVENOUS, 1.5 MG, INTRAVENOUS
     Dates: start: 20070626, end: 20070807
  2. VELCADE [Suspect]
     Indication: MULTIPLE MYELOMA
     Dosage: 2 MG, INTRAVENOUS, 1.5 MG, INTRAVENOUS
     Dates: start: 20070810, end: 20070928
  3. RANITIDINE HYDROCHLORIDE [Concomitant]
  4. REBAMIPIDE (REBAMIPIDE) [Concomitant]
  5. PANTHETHINE (PANTHETHINE) [Concomitant]
  6. MAGNESIUM OXIDE (MAGNESIUM OXIDE) [Concomitant]
  7. PAROXETINE HCL [Concomitant]
  8. AMOXICILLIN W/CLAVULANATE  POTASSIUM (AMOXICILLIN, CLAVULANATE POTASSI [Concomitant]
  9. KAKKON-TO (HERBAL EXTRACTS NOS) [Concomitant]

REACTIONS (10)
  - FOLLICULITIS [None]
  - HYPOTENSION [None]
  - NASOPHARYNGITIS [None]
  - NEUTROPHIL COUNT DECREASED [None]
  - ORAL HERPES [None]
  - PLATELET COUNT DECREASED [None]
  - PYREXIA [None]
  - TOXIC SKIN ERUPTION [None]
  - WHITE BLOOD CELL COUNT DECREASED [None]
  - YAWNING [None]
